FAERS Safety Report 5318702-1 (Version None)
Quarter: 2007Q2

REPORT INFORMATION
  Report Type: 
  Country: None (occurrence: None)
  Receive Date: 20070503
  Receipt Date: 20070503
  Transmission Date: 20071010
  Serious: No
  Sender: FDA-Public Use
  Company Number: None

PATIENT
  Age: 2 Year
  Sex: Female

DRUGS (15)
  1. DEPAKENE [Suspect]
     Dates: start: 20051107, end: 20060106
  2. PHENOBARBITAL TAB [Concomitant]
  3. LAMICTAL [Concomitant]
  4. TOPAMAX [Concomitant]
  5. KLONOPIN [Concomitant]
  6. ZANTAC [Concomitant]
  7. PULMICORT [Concomitant]
  8. COLACE [Concomitant]
  9. CEFTIN [Concomitant]
  10. AUGMENTIN '125' [Concomitant]
  11. ACETAMINOPHEN [Concomitant]
  12. ADVIL [Concomitant]
  13. ANTIBIOTICS [Concomitant]
  14. NEBULIZER TREATMENTS [Concomitant]
  15. STEROIDS [Concomitant]

REACTIONS (16)
  - ALANINE AMINOTRANSFERASE INCREASED [None]
  - ASPARTATE AMINOTRANSFERASE INCREASED [None]
  - ASPIRATION [None]
  - BLOOD ALKALINE PHOSPHATASE INCREASED [None]
  - CARDIAC DISORDER [None]
  - CONDITION AGGRAVATED [None]
  - CONVULSION [None]
  - DEPRESSED LEVEL OF CONSCIOUSNESS [None]
  - HEPATOTOXICITY [None]
  - HYPERAMMONAEMIA [None]
  - INCREASED BRONCHIAL SECRETION [None]
  - LARYNGEAL OEDEMA [None]
  - LIVER INJURY [None]
  - LUNG DISORDER [None]
  - PNEUMONIA [None]
  - PYREXIA [None]
